FAERS Safety Report 4889201-6 (Version None)
Quarter: 2006Q1

REPORT INFORMATION
  Report Type: 
  Country: None (occurrence: None)
  Receive Date: 20060124
  Receipt Date: 20060116
  Transmission Date: 20060701
  Serious: Yes (Hospitalization)
  Sender: FDA-Public Use
  Company Number: CA-JNJFOC-20051104723

PATIENT
  Age: 55 Year
  Sex: Female

DRUGS (7)
  1. REMICADE [Suspect]
     Route: 042
  2. REMICADE [Suspect]
     Route: 042
  3. REMICADE [Suspect]
     Indication: RHEUMATOID ARTHRITIS
     Route: 042
  4. THYROID PILLS [Concomitant]
     Route: 048
  5. METHOTREXATE [Concomitant]
     Route: 058
  6. FOLIC ACID [Concomitant]
  7. PENTALOC [Concomitant]
     Route: 048

REACTIONS (3)
  - ABDOMINAL PAIN [None]
  - DIARRHOEA [None]
  - VOMITING [None]
